FAERS Safety Report 9603001 (Version 2)
Quarter: 2013Q4

REPORT INFORMATION
  Report Type: Report from Study
  Country: US (occurrence: US)
  Receive Date: 20131007
  Receipt Date: 20131018
  Transmission Date: 20140711
  Serious: Yes (Hospitalization)
  Sender: FDA-Public Use
  Company Number: US-ACTELION-A-NJ2013-89139

PATIENT
  Age: 57 Year
  Sex: Male

DRUGS (16)
  1. TRACLEER [Suspect]
     Indication: PULMONARY ARTERIAL HYPERTENSION
     Dosage: 125 MG, BID
     Route: 048
     Dates: start: 20130115
  2. TRACLEER [Suspect]
     Dosage: 62.5 MG, BID
     Route: 048
     Dates: start: 201211, end: 20130114
  3. ACETAMINOPHEN [Concomitant]
     Dosage: UNK
  4. FLUTICASONE [Concomitant]
  5. SALMETEROL [Concomitant]
  6. MYLANTA [Concomitant]
  7. ALBUTEROL [Concomitant]
  8. AMOXICILLIN [Concomitant]
  9. BUDESONIDE [Concomitant]
  10. FORMOTEROL [Concomitant]
  11. SYMBICORT [Concomitant]
  12. LASIX [Concomitant]
     Dosage: 20 MG, QD
  13. LEVOTHYROXINE [Concomitant]
     Dosage: 75 MCG, QD
  14. MAGNESIUM HYDROXIDE [Concomitant]
  15. MINERAL OIL EMULSION [Concomitant]
  16. SILDENAFIL [Concomitant]
     Dosage: 20 MG, TID

REACTIONS (11)
  - Acute myocardial infarction [Recovering/Resolving]
  - Acute coronary syndrome [Recovering/Resolving]
  - Hyperhidrosis [Recovering/Resolving]
  - Tachypnoea [Recovering/Resolving]
  - Anxiety [Recovering/Resolving]
  - Cardiac failure congestive [Recovering/Resolving]
  - Brain natriuretic peptide increased [Recovering/Resolving]
  - Asthma [Recovering/Resolving]
  - Wheezing [Recovering/Resolving]
  - Respiratory distress [Recovering/Resolving]
  - Dyspnoea [Recovering/Resolving]
